FAERS Safety Report 5446704-3 (Version None)
Quarter: 2007Q3

REPORT INFORMATION
  Report Type: 
  Country: None (occurrence: None)
  Receive Date: 20070907
  Receipt Date: 20070831
  Transmission Date: 20080115
  Serious: No
  Sender: FDA-Public Use
  Company Number: US-BOEHRINGER INGELHEIM PHARMACEUTICALS, INC.-2007-BP-18319BP

PATIENT
  Sex: Male
  Weight: 73 kg

DRUGS (5)
  1. APTIVUS/RITONAVIR CAPSULES [Suspect]
     Indication: HIV INFECTION
     Route: 048
     Dates: start: 20070529, end: 20070621
  2. TRUVADA [Concomitant]
     Route: 048
     Dates: start: 20060619, end: 20070621
  3. FUZEON [Concomitant]
     Route: 058
     Dates: start: 20070529, end: 20070621
  4. RALTEGRAVIR POTASSIUM [Concomitant]
     Route: 048
     Dates: start: 20070529, end: 20070621
  5. RITONAVIR [Concomitant]
     Route: 048
     Dates: start: 20070529, end: 20070621

REACTIONS (5)
  - DIARRHOEA [None]
  - HEADACHE [None]
  - LIVER FUNCTION TEST ABNORMAL [None]
  - NAUSEA [None]
  - VOMITING [None]
